FAERS Safety Report 5366681-3 (Version None)
Quarter: 2007Q2

REPORT INFORMATION
  Report Type: 
  Country: None (occurrence: None)
  Receive Date: 20070622
  Receipt Date: 20060427
  Transmission Date: 20071010
  Serious: No
  Sender: FDA-Public Use
  Company Number: US-ASTRAZENECA-2006UW07570

PATIENT
  Age: 75 Year
  Sex: Male
  Weight: 73.5 kg

DRUGS (6)
  1. RHINOCORT [Suspect]
     Indication: SEASONAL ALLERGY
     Route: 045
  2. ATENOLOL [Concomitant]
     Route: 048
  3. PREVACID [Concomitant]
     Route: 048
  4. FLOMAX [Concomitant]
  5. LIPITOR [Concomitant]
     Route: 048
  6. ASPIRIN [Concomitant]
     Route: 048

REACTIONS (1)
  - DIZZINESS [None]
